FAERS Safety Report 11756336 (Version 4)
Quarter: 2016Q1

REPORT INFORMATION
  Report Type: Spontaneous
  Country: US (occurrence: US)
  Receive Date: 20151119
  Receipt Date: 20160209
  Transmission Date: 20160525
  Serious: Yes (Other)
  Sender: FDA-Public Use
  Company Number: US-ALLERGAN-1515860US

PATIENT
  Age: 69 Year
  Sex: Male

DRUGS (4)
  1. COMBIGAN [Suspect]
     Active Substance: BRIMONIDINE TARTRATE\TIMOLOL MALEATE
     Dosage: 2 GTT, BID
     Route: 047
     Dates: start: 201509
  2. LUMIGAN [Suspect]
     Active Substance: BIMATOPROST
     Indication: PRODUCT USED FOR UNKNOWN INDICATION
     Dosage: 2 GTT, QPM
     Route: 047
  3. LUMIGAN [Suspect]
     Active Substance: BIMATOPROST
     Dosage: 2 GTT, QPM
     Route: 047
     Dates: start: 201509
  4. COMBIGAN [Suspect]
     Active Substance: BRIMONIDINE TARTRATE\TIMOLOL MALEATE
     Indication: GLAUCOMA
     Dosage: 2 GTT, BID
     Route: 047

REACTIONS (3)
  - Product packaging quantity issue [Unknown]
  - Drug dose omission [Unknown]
  - Intraocular pressure increased [Recovered/Resolved]
